FAERS Safety Report 9366878 (Version 1)
Quarter: 2013Q2

REPORT INFORMATION
  Report Type: Spontaneous
  Country: US (occurrence: US)
  Receive Date: 20130625
  Receipt Date: 20130625
  Transmission Date: 20140414
  Serious: Yes (Hospitalization)
  Sender: FDA-Public Use
  Company Number: US-GLAXOSMITHKLINE-A1027853A

PATIENT
  Sex: Male

DRUGS (2)
  1. ADVAIR [Suspect]
     Indication: CHRONIC OBSTRUCTIVE PULMONARY DISEASE
     Dosage: 1PUFF VARIABLE DOSE
     Route: 055
     Dates: start: 2003
  2. UNKNOWN MEDICATION [Concomitant]

REACTIONS (4)
  - Hypoxia [Recovered/Resolved]
  - Lung infection [Unknown]
  - Palpitations [Not Recovered/Not Resolved]
  - Drug dose omission [Not Recovered/Not Resolved]
